FAERS Safety Report 7622403-4 (Version None)
Quarter: 2011Q3

REPORT INFORMATION
  Report Type: 
  Country: None (occurrence: None)
  Receive Date: 20110718
  Receipt Date: 20110718
  Transmission Date: 20111222
  Serious: No
  Sender: FDA-Public Use
  Company Number: None

PATIENT
  Age: 62 Year
  Sex: Female

DRUGS (1)
  1. LOVAZA [Suspect]
     Dosage: 4 CAPSULES DAILY
     Dates: start: 20110226

REACTIONS (3)
  - CAPSULE PHYSICAL ISSUE [None]
  - RETCHING [None]
  - PRODUCT ODOUR ABNORMAL [None]
